FAERS Safety Report 20319582 (Version 2)
Quarter: 2022Q1

REPORT INFORMATION
  Report Type: Spontaneous
  Country: US (occurrence: None)
  Receive Date: 20220110
  Receipt Date: 20220302
  Transmission Date: 20220423
  Serious: No
  Sender: FDA-Public Use
  Company Number: 2022A008814

PATIENT
  Age: 649 Month
  Sex: Male
  Weight: 104.3 kg

DRUGS (1)
  1. BYDUREON BCISE [Suspect]
     Active Substance: EXENATIDE
     Indication: Type 2 diabetes mellitus
     Route: 058

REACTIONS (7)
  - Bronchitis [Unknown]
  - Cough [Unknown]
  - Injection site extravasation [Unknown]
  - Injection site haemorrhage [Unknown]
  - Device malfunction [Unknown]
  - Device use issue [Unknown]
  - Needle issue [Unknown]

NARRATIVE: CASE EVENT DATE: 20211201
